FAERS Safety Report 18389842 (Version 1)
Quarter: 2020Q4

REPORT INFORMATION
  Report Type: Report from Study
  Country: GT (occurrence: GT)
  Receive Date: 20201015
  Receipt Date: 20201015
  Transmission Date: 20210114
  Serious: Yes (Hospitalization)
  Sender: FDA-Public Use
  Company Number: NVSC2020GT271516

PATIENT
  Age: 64 Year
  Sex: Female

DRUGS (3)
  1. VYMADA [Suspect]
     Active Substance: SACUBITRIL\VALSARTAN
     Indication: PRODUCT USED FOR UNKNOWN INDICATION
     Dosage: 50 MG, UNKNOWN (START DATE:03YRS AGO,STOP DATE:2 YEARS AGO)
     Route: 065
  2. VYMADA [Suspect]
     Active Substance: SACUBITRIL\VALSARTAN
     Dosage: 100 MG, UNKNOWN(START DATE:2 AND HALF YEAR AGO,STOP DATE:ONE YEAR AGO)
     Route: 065
  3. VYMADA [Suspect]
     Active Substance: SACUBITRIL\VALSARTAN
     Dosage: 200 MG, UNKNOWN(START DATE:02 YRS AGO)
     Route: 065

REACTIONS (4)
  - Memory impairment [Unknown]
  - Inappropriate schedule of product administration [Unknown]
  - Infarction [Unknown]
  - Malaise [Unknown]
